FAERS Safety Report 25334985 (Version 1)
Quarter: 2025Q2

REPORT INFORMATION
  Report Type: Spontaneous
  Country: CN (occurrence: CN)
  Receive Date: 20250520
  Receipt Date: 20250520
  Transmission Date: 20250717
  Serious: Yes (Hospitalization, Other)
  Sender: BAXTER
  Company Number: None

PATIENT
  Age: 35 Year
  Sex: Male
  Weight: 71.5 kg

DRUGS (18)
  1. CYCLOPHOSPHAMIDE [Suspect]
     Active Substance: CYCLOPHOSPHAMIDE
     Indication: Burkitt^s lymphoma
     Dosage: 0.54 G, BID, Q12H, D2-D4
     Route: 041
     Dates: start: 20250417, end: 20250419
  2. SODIUM CHLORIDE [Suspect]
     Active Substance: SODIUM CHLORIDE
     Dosage: 100 ML, QD, D1, 0.9% INJECTION IVGTT, COMBINED WITH RITUXIMAB 100 MG
     Route: 041
     Dates: start: 20250416, end: 20250416
  3. SODIUM CHLORIDE [Suspect]
     Active Substance: SODIUM CHLORIDE
     Dosage: 500 ML, QD, D1, 0.9% INJECTION IVGTT, COMBINED WITH RITUXIMAB 500 MG
     Route: 041
     Dates: start: 20250416, end: 20250416
  4. SODIUM CHLORIDE [Suspect]
     Active Substance: SODIUM CHLORIDE
     Dosage: 100 ML, BID, Q12H D2-D4, 0.9% INJECTION IVGTT
     Route: 041
     Dates: start: 20250417, end: 20250419
  5. SODIUM CHLORIDE [Suspect]
     Active Substance: SODIUM CHLORIDE
     Dosage: 40 ML, QD, D5, 0.9%
     Route: 041
     Dates: start: 20250420, end: 20250420
  6. DEXTROSE [Suspect]
     Active Substance: DEXTROSE MONOHYDRATE
     Dosage: 250 ML, QD, 5% IVGTT, D5
     Route: 041
     Dates: start: 20250420, end: 20250420
  7. RITUXIMAB [Suspect]
     Active Substance: RITUXIMAB
     Indication: Burkitt^s lymphoma
     Dosage: 100 MG, QD; IVGTT, D1 (TOTAL: 100 MG+500 MG: 600 MG)
     Route: 041
     Dates: start: 20250416, end: 20250416
  8. RITUXIMAB [Suspect]
     Active Substance: RITUXIMAB
     Dosage: 500 MG, QD, IVGTT, D1 (TOTAL: 100 MG+500 MG: 600 MG)
     Route: 041
     Dates: start: 20250416, end: 20250416
  9. VINDESINE SULFATE [Suspect]
     Active Substance: VINDESINE SULFATE
     Indication: Burkitt^s lymphoma
     Dosage: 5 MG, QD, D5
     Route: 041
     Dates: start: 20250420, end: 20250420
  10. CYTARABINE [Suspect]
     Active Substance: CYTARABINE
     Indication: Burkitt^s lymphoma
     Dosage: 0.04 G, QD
     Route: 037
     Dates: start: 20250414, end: 20250414
  11. CYTARABINE [Suspect]
     Active Substance: CYTARABINE
     Indication: Central nervous system leukaemia
  12. CYTARABINE [Suspect]
     Active Substance: CYTARABINE
     Indication: Prophylaxis
  13. METHOTREXATE [Suspect]
     Active Substance: METHOTREXATE
     Indication: Burkitt^s lymphoma
     Dosage: 0.01 G, QD
     Route: 037
     Dates: start: 20250414, end: 20250414
  14. METHOTREXATE [Suspect]
     Active Substance: METHOTREXATE
     Indication: Central nervous system leukaemia
  15. METHOTREXATE [Suspect]
     Active Substance: METHOTREXATE
     Indication: Prophylaxis
  16. MITOXANTRONE HYDROCHLORIDE [Suspect]
     Active Substance: MITOXANTRONE HYDROCHLORIDE
     Indication: Burkitt^s lymphoma
     Dosage: 40 MG, QD, IVGTT D5
     Route: 041
     Dates: start: 20250420, end: 20250420
  17. DEXAMETHASONE [Concomitant]
     Active Substance: DEXAMETHASONE
     Indication: Central nervous system leukaemia
     Dosage: 6 MG, QD
     Route: 037
     Dates: start: 20250414, end: 20250414
  18. DEXAMETHASONE [Concomitant]
     Active Substance: DEXAMETHASONE
     Indication: Prophylaxis

REACTIONS (4)
  - Myelosuppression [Recovering/Resolving]
  - Temperature intolerance [Unknown]
  - Cough [Unknown]
  - Pyrexia [Unknown]

NARRATIVE: CASE EVENT DATE: 20250425
